FAERS Safety Report 5365734-3 (Version None)
Quarter: 2007Q2

REPORT INFORMATION
  Report Type: 
  Country: None (occurrence: None)
  Receive Date: 20070621
  Receipt Date: 20070423
  Transmission Date: 20071010
  Serious: Yes (Other)
  Sender: FDA-Public Use
  Company Number: US-PURDUE-USA_2007_0027698

PATIENT
  Age: 45 Year
  Sex: Female
  Weight: 58 kg

DRUGS (3)
  1. OXYCONTIN [Suspect]
     Indication: PAIN
     Dosage: UNK, SEE TEXT
     Dates: start: 19980901
  2. ZANAFLEX [Concomitant]
  3. XANAX [Concomitant]

REACTIONS (13)
  - ABASIA [None]
  - CEREBROVASCULAR ACCIDENT [None]
  - DRUG DEPENDENCE [None]
  - DRUG EFFECT DECREASED [None]
  - DRUG WITHDRAWAL SYNDROME [None]
  - FEELING ABNORMAL [None]
  - GENERAL PHYSICAL HEALTH DETERIORATION [None]
  - MENTAL DISORDER [None]
  - MOOD SWINGS [None]
  - PAIN [None]
  - THERMAL BURN [None]
  - TREMOR [None]
  - VOMITING [None]
